FAERS Safety Report 7226309-4 (Version None)
Quarter: 2011Q1

REPORT INFORMATION
  Report Type: 
  Country: None (occurrence: None)
  Receive Date: 20110114
  Receipt Date: 20110107
  Transmission Date: 20110831
  Serious: Yes (Death, Hospitalization, Other)
  Sender: FDA-Public Use
  Company Number: PHHY2011FR01761

PATIENT
  Age: 75 Year
  Sex: Male

DRUGS (3)
  1. LAMOTRIGINE [Suspect]
     Dosage: 50 MG/DAY
  2. LAMOTRIGINE [Suspect]
     Indication: GRAND MAL CONVULSION
     Dosage: 25 MG/DAY
  3. LAMOTRIGINE [Suspect]
     Dosage: 100 MG/DAY

REACTIONS (22)
  - NECROSIS [None]
  - DRUG RASH WITH EOSINOPHILIA AND SYSTEMIC SYMPTOMS [None]
  - MULTI-ORGAN FAILURE [None]
  - EOSINOPHILIA [None]
  - CYTOLYTIC HEPATITIS [None]
  - RALES [None]
  - SEPTIC SHOCK [None]
  - LYMPHADENOPATHY [None]
  - PYREXIA [None]
  - OEDEMATOUS PANCREATITIS [None]
  - OLIGURIA [None]
  - RENAL FAILURE [None]
  - PNEUMONIA STAPHYLOCOCCAL [None]
  - HEPATOMEGALY [None]
  - PANCREATITIS ACUTE [None]
  - HEPATITIS CHOLESTATIC [None]
  - HEPATIC FAILURE [None]
  - HUMAN HERPES VIRUS 6 SEROLOGY POSITIVE [None]
  - RASH MACULO-PAPULAR [None]
  - WHITE BLOOD CELL COUNT INCREASED [None]
  - ABDOMINAL PAIN [None]
  - POLYMERASE CHAIN REACTION [None]
